FAERS Safety Report 22525626 (Version 1)
Quarter: 2023Q2

REPORT INFORMATION
  Report Type: Spontaneous
  Country: US (occurrence: US)
  Receive Date: 20230606
  Receipt Date: 20230606
  Transmission Date: 20230721
  Serious: No
  Sender: FDA-Public Use
  Company Number: US-SA-SAC20230605000978

PATIENT
  Age: 69 Year
  Sex: Female
  Weight: 89.3 kg

DRUGS (12)
  1. DUPIXENT [Suspect]
     Active Substance: DUPILUMAB
     Indication: Pemphigoid
     Dosage: 300 MG, QOW
     Route: 058
     Dates: start: 20230514
  2. SEMGLEE [INSULIN GLARGINE YFGN] [Concomitant]
     Dosage: SEMGLEE (YFGN) PEN
  3. ROSUVASTATIN CALCIUM [Concomitant]
     Active Substance: ROSUVASTATIN CALCIUM
  4. JANUVIA [Concomitant]
     Active Substance: SITAGLIPTIN PHOSPHATE
  5. GLIPIZIDE [Concomitant]
     Active Substance: GLIPIZIDE
  6. VALSARTAN [HYDROCHLOROTHIAZIDE;VALSARTAN] [Concomitant]
  7. PIOGLITAZONE [Concomitant]
     Active Substance: PIOGLITAZONE
  8. FARXIGA [Concomitant]
     Active Substance: DAPAGLIFLOZIN PROPANEDIOL
  9. PREDNISONE [Concomitant]
     Active Substance: PREDNISONE
  10. ATENOLOL [Concomitant]
     Active Substance: ATENOLOL
  11. DOXYCYCLINE HYCLATE [Concomitant]
     Active Substance: DOXYCYCLINE HYCLATE
  12. METFORMIN HYDROCHLORIDE [Concomitant]
     Active Substance: METFORMIN HYDROCHLORIDE

REACTIONS (1)
  - Product use in unapproved indication [Unknown]

NARRATIVE: CASE EVENT DATE: 20230514
